FAERS Safety Report 23987023 (Version 1)
Quarter: 2024Q2

REPORT INFORMATION
  Report Type: Spontaneous
  Country: US (occurrence: None)
  Receive Date: 20240618
  Receipt Date: 20240618
  Transmission Date: 20240716
  Serious: Yes (Other)
  Sender: FDA-Public Use
  Company Number: None

PATIENT
  Age: 65 Year
  Sex: Male
  Weight: 84.6 kg

DRUGS (5)
  1. NUEDEXTA [Suspect]
     Active Substance: DEXTROMETHORPHAN HYDROBROMIDE\QUINIDINE SULFATE
     Indication: Emotional disorder
     Dosage: 60 CAPSULES ONE A DAY FOR 7 DA ORAL
     Route: 048
     Dates: start: 20240521, end: 20240530
  2. ZZZQUIL NIGHTTIME SLEEP-AID [Suspect]
     Active Substance: DIPHENHYDRAMINE HYDROCHLORIDE
  3. BREZTRI [Concomitant]
     Active Substance: BUDESONIDE\FORMOTEROL\GLYCOPYRROLATE
  4. VITAMIN D [Concomitant]
     Active Substance: VITAMIN D NOS
  5. Centrium Silver [Concomitant]

REACTIONS (3)
  - Dysuria [None]
  - Loss of employment [None]
  - Therapy cessation [None]

NARRATIVE: CASE EVENT DATE: 20240521
